FAERS Safety Report 5214152-7 (Version None)
Quarter: 2007Q1

REPORT INFORMATION
  Report Type: 
  Country: None (occurrence: None)
  Receive Date: 20070116
  Receipt Date: 20070105
  Transmission Date: 20070707
  Serious: Yes (Other)
  Sender: FDA-Public Use
  Company Number: GBWYE558316NOV06

PATIENT
  Sex: Female

DRUGS (3)
  1. PREMARIN [Suspect]
     Dosage: 1.25 MG 2X PER 1 DAY
  2. ORTHO-GYNEST (ESTRIOL) [Concomitant]
  3. FLUOXETINE [Concomitant]

REACTIONS (3)
  - BIPOLAR DISORDER [None]
  - MOOD ALTERED [None]
  - WEIGHT INCREASED [None]
